FAERS Safety Report 9760688 (Version 1)
Quarter: 2013Q4

REPORT INFORMATION
  Report Type: Spontaneous
  Country: US (occurrence: US)
  Receive Date: 20131216
  Receipt Date: 20131216
  Transmission Date: 20140711
  Serious: No
  Sender: FDA-Public Use
  Company Number: US-BIOGENIDEC-2013BI100273

PATIENT
  Sex: Female

DRUGS (5)
  1. TECFIDERA [Suspect]
     Indication: MULTIPLE SCLEROSIS
  2. MAXALT [Concomitant]
  3. AMANTADINE HCL [Concomitant]
  4. KLONOPIN [Concomitant]
  5. CYMBALTA [Concomitant]

REACTIONS (1)
  - Flushing [Recovered/Resolved]
